FAERS Safety Report 8369283-X (Version None)
Quarter: 2012Q2

REPORT INFORMATION
  Report Type: 
  Country: None (occurrence: None)
  Receive Date: 20120518
  Receipt Date: 20120513
  Transmission Date: 20120825
  Serious: Yes (Other)
  Sender: FDA-Public Use
  Company Number: PHHY2012MX042027

PATIENT
  Sex: Female

DRUGS (1)
  1. ZOLEDRONOC ACID [Suspect]
     Indication: OSTEOPOROSIS
     Dosage: 5 MG/100 ML, PER YEAR
     Route: 042
     Dates: start: 20120508

REACTIONS (9)
  - ANGINA PECTORIS [None]
  - HIP FRACTURE [None]
  - FATIGUE [None]
  - MUSCULOSKELETAL DISCOMFORT [None]
  - PYREXIA [None]
  - INJURY [None]
  - CHILLS [None]
  - PAIN IN EXTREMITY [None]
  - ARTHRALGIA [None]
